FAERS Safety Report 25876214 (Version 1)
Quarter: 2025Q4

REPORT INFORMATION
  Report Type: Spontaneous
  Country: EU (occurrence: EU)
  Receive Date: 20251003
  Receipt Date: 20251003
  Transmission Date: 20260119
  Serious: Yes (Other)
  Sender: TEVA
  Company Number: EU-TEVA-VS-3377439

PATIENT
  Age: 68 Year
  Sex: Male

DRUGS (2)
  1. ROSUVASTATIN [Suspect]
     Active Substance: ROSUVASTATIN
     Indication: Prophylaxis
     Route: 048
     Dates: start: 2022, end: 2025
  2. ASPIRIN [Concomitant]
     Active Substance: ASPIRIN
     Indication: Product used for unknown indication
     Dosage: 100, SAW PALMETTO PREPARATION
     Route: 065

REACTIONS (8)
  - Blood creatine phosphokinase increased [Unknown]
  - Skin burning sensation [Recovering/Resolving]
  - Pain [Recovered/Resolved]
  - Hypokinesia [Recovered/Resolved]
  - Drug hypersensitivity [Unknown]
  - Dermatitis [Unknown]
  - Blood immunoglobulin E increased [Unknown]
  - Gait disturbance [Recovered/Resolved]

NARRATIVE: CASE EVENT DATE: 20230101
